APPROVED DRUG PRODUCT: BACLOFEN
Active Ingredient: BACLOFEN
Strength: 0.5MG/ML
Dosage Form/Route: INJECTABLE;INTRATHECAL
Application: A216309 | Product #001
Applicant: HERITAGE PHARMACEUTICALS INC DBA AVET PHARMACEUTICALS INC
Approved: Aug 10, 2023 | RLD: No | RS: No | Type: DISCN